FAERS Safety Report 12960194 (Version 1)
Quarter: 2016Q4

REPORT INFORMATION
  Report Type: Spontaneous
  Country: US (occurrence: US)
  Receive Date: 20161121
  Receipt Date: 20161121
  Transmission Date: 20170207
  Serious: Yes (Other)
  Sender: FDA-Public Use
  Company Number: US-MIST-NMS-2016-0026

PATIENT
  Age: 47 Year
  Sex: Male

DRUGS (3)
  1. NITROGLYCERIN. [Suspect]
     Active Substance: NITROGLYCERIN
     Indication: CHEST PAIN
     Route: 060
  2. NITROGLYCERIN. [Suspect]
     Active Substance: NITROGLYCERIN
     Route: 042
  3. COCAINE [Suspect]
     Active Substance: COCAINE
     Indication: PRODUCT USED FOR UNKNOWN INDICATION

REACTIONS (3)
  - Vasospasm [Recovering/Resolving]
  - Electrocardiogram ST segment elevation [Unknown]
  - Drug ineffective for unapproved indication [Unknown]
